FAERS Safety Report 9632470 (Version 1)
Quarter: 2013Q4

REPORT INFORMATION
  Report Type: Spontaneous
  Country: US (occurrence: None)
  Receive Date: 20131018
  Receipt Date: 20131018
  Transmission Date: 20140711
  Serious: Yes (Disabling)
  Sender: FDA-Public Use
  Company Number: None

PATIENT
  Age: 58 Year
  Sex: Female

DRUGS (3)
  1. RITALIN [Suspect]
     Indication: DEPRESSION
  2. CYMBALTA [Concomitant]
  3. DIOVAN [Concomitant]

REACTIONS (1)
  - Bruxism [None]
